FAERS Safety Report 7307291-8 (Version None)
Quarter: 2011Q1

REPORT INFORMATION
  Report Type: 
  Country: None (occurrence: None)
  Receive Date: 20110120
  Receipt Date: 20091201
  Transmission Date: 20110831
  Serious: Yes (Other)
  Sender: FDA-Public Use
  Company Number: WAES 0912USA00625

PATIENT
  Sex: Male

DRUGS (1)
  1. INVANZ [Suspect]
     Indication: INFECTION PROPHYLAXIS
     Dosage: 1 GM
     Dates: end: 20091121

REACTIONS (1)
  - CONVULSION [None]
